FAERS Safety Report 8152290-X (Version None)
Quarter: 2012Q1

REPORT INFORMATION
  Report Type: 
  Country: None (occurrence: None)
  Receive Date: 20120221
  Receipt Date: 20120217
  Transmission Date: 20120608
  Serious: No
  Sender: FDA-Public Use
  Company Number: US-PFIZER INC-2012043645

PATIENT
  Sex: Female

DRUGS (2)
  1. IBUPROFEN (ADVIL) [Suspect]
     Dosage: UNK
  2. FLECTOR [Suspect]
     Indication: MENISCUS LESION
     Dosage: UNK

REACTIONS (4)
  - DRUG INEFFECTIVE [None]
  - DRUG EFFECT DECREASED [None]
  - ARTHROPATHY [None]
  - LIGAMENT RUPTURE [None]
